FAERS Safety Report 22143290 (Version 1)
Quarter: 2023Q1

REPORT INFORMATION
  Report Type: Report from Study
  Country: RO (occurrence: RO)
  Receive Date: 20230327
  Receipt Date: 20230327
  Transmission Date: 20230418
  Serious: Yes (Hospitalization, Other)
  Sender: FDA-Public Use
  Company Number: RO-ABBVIE-4700955

PATIENT
  Age: 53 Year
  Sex: Female

DRUGS (6)
  1. GLECAPREVIR\PIBRENTASVIR [Suspect]
     Active Substance: GLECAPREVIR\PIBRENTASVIR
     Indication: Chronic hepatitis C
     Dosage: 300 MG/120 MG
     Dates: start: 20221001, end: 20221125
  2. GABAPENTIN [Concomitant]
     Active Substance: GABAPENTIN
     Indication: Bone pain
     Dosage: 2 TABLET
     Route: 048
  3. ACETAMINOPHEN\TRAMADOL HYDROCHLORIDE [Concomitant]
     Active Substance: ACETAMINOPHEN\TRAMADOL HYDROCHLORIDE
     Indication: Bone pain
     Dosage: 1 TABLET, WHEN NEEDED
     Route: 048
  4. FOSTER [Concomitant]
     Active Substance: BECLOMETHASONE\FORMOTEROL
     Indication: Asthma
     Dosage: FIRST ADMIN DATE: 2012
  5. MONTELUKAST [Concomitant]
     Active Substance: MONTELUKAST SODIUM
     Indication: Asthma
     Dosage: 1 TABLET
     Route: 048
  6. Milgamma [Concomitant]
     Indication: Diabetes mellitus
     Dosage: 2 TABLET?FIRST ADMIN DATE: 2018
     Route: 048

REACTIONS (3)
  - Urinary tract infection [Recovered/Resolved]
  - Blood iron decreased [Recovering/Resolving]
  - Renal failure [Recovered/Resolved]

NARRATIVE: CASE EVENT DATE: 20230101
